FAERS Safety Report 23472583 (Version 1)
Quarter: 2024Q1

REPORT INFORMATION
  Report Type: Spontaneous
  Country: US (occurrence: US)
  Receive Date: 20240202
  Receipt Date: 20240202
  Transmission Date: 20240410
  Serious: Yes (Other)
  Sender: FDA-Public Use
  Company Number: US-MLMSERVICE-20240118-4781996-1

PATIENT
  Age: 72 Year
  Sex: Female

DRUGS (4)
  1. PREDNISOLONE ACETATE [Suspect]
     Active Substance: PREDNISOLONE ACETATE
     Indication: Corneal perforation
     Route: 061
     Dates: start: 202202
  2. VANCOMYCIN [Concomitant]
     Active Substance: VANCOMYCIN
     Indication: Corneal perforation
     Dosage: 25 MG/ML
     Route: 061
     Dates: start: 202202
  3. TOBRAMYCIN [Concomitant]
     Active Substance: TOBRAMYCIN
     Indication: Corneal perforation
     Dosage: 15 MG/ML
     Route: 061
     Dates: start: 202202
  4. MOXIFLOXACIN [Concomitant]
     Active Substance: MOXIFLOXACIN
     Indication: Corneal perforation
     Route: 061
     Dates: start: 202202

REACTIONS (1)
  - Keratitis fungal [Recovered/Resolved]

NARRATIVE: CASE EVENT DATE: 20220101
